FAERS Safety Report 24243715 (Version 1)
Quarter: 2024Q3

REPORT INFORMATION
  Report Type: Spontaneous
  Country: TH (occurrence: TH)
  Receive Date: 20240823
  Receipt Date: 20240823
  Transmission Date: 20241016
  Serious: Yes (Other)
  Sender: MERCK
  Company Number: TH-009507513-2408THA005845

PATIENT
  Age: 70 Year

DRUGS (4)
  1. KEYTRUDA [Suspect]
     Active Substance: PEMBROLIZUMAB
     Indication: Squamous cell carcinoma of head and neck
     Dosage: 4 CYCLES
     Dates: start: 2021
  2. KEYTRUDA [Suspect]
     Active Substance: PEMBROLIZUMAB
     Dosage: 31 CYCLES
     Dates: start: 20221011
  3. FLUOROURACIL [Suspect]
     Active Substance: FLUOROURACIL
     Indication: Squamous cell carcinoma of head and neck
     Dosage: 4 CYCLES
     Dates: start: 2021
  4. CARBOPLATIN [Suspect]
     Active Substance: CARBOPLATIN
     Indication: Squamous cell carcinoma of head and neck
     Dosage: 4 CYCLES
     Dates: start: 2021

REACTIONS (12)
  - Malignant neoplasm progression [Unknown]
  - Tuberculosis [Unknown]
  - Pulmonary oedema [Unknown]
  - Pneumothorax [Unknown]
  - Dry skin [Unknown]
  - Pruritus [Unknown]
  - Atelectasis [Unknown]
  - Cardiomegaly [Unknown]
  - Lung opacity [Unknown]
  - Mass [Unknown]
  - Nodule [Unknown]
  - Pleural effusion [Unknown]

NARRATIVE: CASE EVENT DATE: 20210401
